FAERS Safety Report 5300074-X (Version None)
Quarter: 2007Q2

REPORT INFORMATION
  Report Type: 
  Country: None (occurrence: None)
  Receive Date: 20070410
  Receipt Date: 20070327
  Transmission Date: 20071010
  Serious: No
  Sender: FDA-Public Use
  Company Number: CH-GUERBET-20070003

PATIENT
  Age: 23 Year
  Sex: Female
  Weight: 28.5766 kg

DRUGS (1)
  1. DOTAREM:  06GD027A / GADOTERIC ACID [Suspect]
     Indication: NUCLEAR MAGNETIC RESONANCE IMAGING
     Dosage: DOSAGE:  15, ML MILLILITRE(S), , ?, TOTAL INTRAVENOUS (NOT OTHERWISE SPECIFIED)
     Route: 042
     Dates: start: 20070327, end: 20070327

REACTIONS (5)
  - COUGH [None]
  - ERYTHEMA [None]
  - FEELING HOT [None]
  - FLUSHING [None]
  - THROAT TIGHTNESS [None]
